FAERS Safety Report 18416304 (Version 3)
Quarter: 2021Q1

REPORT INFORMATION
  Report Type: Spontaneous
  Country: US (occurrence: US)
  Receive Date: 20201022
  Receipt Date: 20210209
  Transmission Date: 20210419
  Serious: No
  Sender: FDA-Public Use
  Company Number: US-PFIZER INC-2020371436

PATIENT
  Age: 45 Year
  Sex: Female
  Weight: 70.31 kg

DRUGS (1)
  1. GENOTROPIN [Suspect]
     Active Substance: SOMATROPIN
     Indication: GROWTH HORMONE DEFICIENCY
     Dosage: 0.3 MG, DAILY (ADMINISTERED DAILY TO UNDER THE SKIN, TUMMY OR HIPS)
     Route: 058
     Dates: start: 2019

REACTIONS (5)
  - Device breakage [Unknown]
  - Device leakage [Unknown]
  - Drug dose omission by device [Unknown]
  - Device use error [Unknown]
  - Device physical property issue [Unknown]

NARRATIVE: CASE EVENT DATE: 202010
